FAERS Safety Report 17671566 (Version 1)
Quarter: 2020Q2

REPORT INFORMATION
  Report Type: Spontaneous
  Country: US (occurrence: US)
  Receive Date: 20200415
  Receipt Date: 20200415
  Transmission Date: 20200713
  Serious: Yes (Other)
  Sender: FDA-Public Use
  Company Number: US-SYNEX-T202001691

PATIENT
  Sex: Male

DRUGS (4)
  1. DOPAMINE [Suspect]
     Active Substance: DOPAMINE HYDROCHLORIDE
     Indication: PULMONARY HYPERTENSION
     Dosage: UNK
     Route: 065
  2. INOMAX [Suspect]
     Active Substance: NITRIC OXIDE
     Indication: PULMONARY HYPERTENSION
     Dosage: UNK (INHALATION)
     Route: 055
  3. INOMAX [Suspect]
     Active Substance: NITRIC OXIDE
     Indication: COR PULMONALE
  4. DOPAMINE [Suspect]
     Active Substance: DOPAMINE HYDROCHLORIDE
     Indication: COR PULMONALE

REACTIONS (3)
  - Venous thrombosis [Recovering/Resolving]
  - Product use issue [Unknown]
  - Pulmonary embolism [Recovering/Resolving]
